FAERS Safety Report 7645146-X (Version None)
Quarter: 2011Q3

REPORT INFORMATION
  Report Type: 
  Country: None (occurrence: None)
  Receive Date: 20110729
  Receipt Date: 20110719
  Transmission Date: 20111222
  Serious: Yes (Other)
  Sender: FDA-Public Use
  Company Number: US-JNJFOC-20110404769

PATIENT
  Sex: Female
  Weight: 70.31 kg

DRUGS (1)
  1. TYLENOL COLD MULTI-SYMPTOM DAYTIME RAPID RELEASE [Suspect]
     Indication: NASOPHARYNGITIS
     Route: 048
     Dates: start: 20110203, end: 20110204

REACTIONS (11)
  - VOMITING [None]
  - DEHYDRATION [None]
  - ABDOMINAL PAIN LOWER [None]
  - REACTION TO DRUG EXCIPIENTS [None]
  - THROAT TIGHTNESS [None]
  - FLANK PAIN [None]
  - TREMOR [None]
  - HEART RATE INCREASED [None]
  - PRODUCT QUALITY ISSUE [None]
  - PAIN [None]
  - HYPOTENSION [None]
